FAERS Safety Report 4701214-3 (Version None)
Quarter: 2005Q2

REPORT INFORMATION
  Report Type: 
  Country: None (occurrence: None)
  Receive Date: 20050624
  Receipt Date: 20050611
  Transmission Date: 20051028
  Serious: Yes (Disabling, Other)
  Sender: FDA-Public Use
  Company Number: 2005087283

PATIENT
  Sex: Male
  Weight: 74.8435 kg

DRUGS (1)
  1. VIAGRA [Suspect]
     Indication: ERECTILE DYSFUNCTION
     Dates: start: 20020101

REACTIONS (6)
  - BLINDNESS [None]
  - EYE DISORDER [None]
  - EYE PAIN [None]
  - GLAUCOMA [None]
  - NERVE INJURY [None]
  - VISUAL DISTURBANCE [None]
